FAERS Safety Report 5876034-7 (Version None)
Quarter: 2008Q3

REPORT INFORMATION
  Report Type: 
  Country: None (occurrence: None)
  Receive Date: 20080908
  Receipt Date: 20080908
  Transmission Date: 20090109
  Serious: Yes (Other)
  Sender: FDA-Public Use
  Company Number: None

PATIENT
  Age: 40 Year
  Sex: Female
  Weight: 122.4712 kg

DRUGS (2)
  1. CYMBALTA [Suspect]
     Indication: DEPRESSION
     Dates: start: 20060501, end: 20080830
  2. CYMBALTA [Suspect]
     Indication: FIBROMYALGIA
     Dates: start: 20060501, end: 20080830

REACTIONS (8)
  - AGGRESSION [None]
  - DISSOCIATION [None]
  - MOOD SWINGS [None]
  - PAIN [None]
  - PARANOIA [None]
  - PRURITUS [None]
  - SUICIDAL IDEATION [None]
  - WITHDRAWAL SYNDROME [None]
